FAERS Safety Report 8831968 (Version 2)
Quarter: 2012Q4

REPORT INFORMATION
  Report Type: Report from Study
  Country: JP (occurrence: JP)
  Receive Date: 20121009
  Receipt Date: 20121228
  Transmission Date: 20130627
  Serious: Yes (Life-Threatening, Other)
  Sender: FDA-Public Use
  Company Number: JP-VERTEX PHARMACEUTICAL INC.-AE-2012-011603

PATIENT
  Age: 68 Year
  Sex: Male

DRUGS (9)
  1. VX-950 (TELAPREVIR) [Suspect]
     Indication: CHRONIC HEPATITIS C
     Dosage: 2250 mg, qd
     Route: 048
     Dates: start: 20120203, end: 20120427
  2. REBETOL [Suspect]
     Indication: CHRONIC HEPATITIS C
     Dosage: 800 mg, qd
     Route: 048
     Dates: start: 20120203, end: 20120315
  3. REBETOL [Suspect]
     Dosage: 400 mg, qd
     Route: 048
     Dates: start: 20120316
  4. REBETOL [Suspect]
     Dosage: 400 mg, qd
     Route: 048
     Dates: end: 20120607
  5. PEGINTRON                          /01543001/ [Suspect]
     Indication: CHRONIC HEPATITIS C
     Dosage: 1.5 ?g/kg, qw
     Route: 058
     Dates: start: 20120203, end: 20120601
  6. PEGINTRON                          /01543001/ [Suspect]
     Route: 058
     Dates: end: 20120601
  7. CALBLOCK [Concomitant]
     Dosage: 16 mg, qd
     Route: 048
  8. GLACTIV [Concomitant]
     Dosage: 50 mg, qd
     Route: 048
  9. ZETIA [Concomitant]
     Dosage: 10 mg, qd
     Route: 048

REACTIONS (2)
  - Hepatic cancer [Recovered/Resolved]
  - White blood cell count decreased [Not Recovered/Not Resolved]
